FAERS Safety Report 21920741 (Version 1)
Quarter: 2023Q1

REPORT INFORMATION
  Report Type: Spontaneous
  Country: CA (occurrence: CA)
  Receive Date: 20230127
  Receipt Date: 20230127
  Transmission Date: 20230417
  Serious: Yes (Hospitalization, Other)
  Sender: FDA-Public Use
  Company Number: ALC2023CA000624

PATIENT
  Age: 44 Year
  Sex: Female
  Weight: 63 kg

DRUGS (211)
  1. PHENYLEPHRINE HYDROCHLORIDE [Suspect]
     Active Substance: PHENYLEPHRINE HYDROCHLORIDE
     Indication: Product used for unknown indication
     Dosage: UNK
     Route: 047
  2. ACETAMINOPHEN [Suspect]
     Active Substance: ACETAMINOPHEN
     Indication: Pain
     Dosage: UNK
     Route: 065
  3. ACETAMINOPHEN [Suspect]
     Active Substance: ACETAMINOPHEN
     Indication: Pain
     Dosage: UNK
     Route: 065
  4. ACETAMINOPHEN\OXYCODONE HYDROCHLORIDE [Suspect]
     Active Substance: ACETAMINOPHEN\OXYCODONE HYDROCHLORIDE
     Indication: Product used for unknown indication
     Dosage: UNK
     Route: 065
  5. ACETAMINOPHEN\OXYCODONE HYDROCHLORIDE [Suspect]
     Active Substance: ACETAMINOPHEN\OXYCODONE HYDROCHLORIDE
     Dosage: UNK
     Route: 065
  6. ACETAMINOPHEN\OXYCODONE HYDROCHLORIDE [Suspect]
     Active Substance: ACETAMINOPHEN\OXYCODONE HYDROCHLORIDE
     Dosage: UNK
     Route: 065
  7. ACETAMINOPHEN\OXYCODONE HYDROCHLORIDE [Suspect]
     Active Substance: ACETAMINOPHEN\OXYCODONE HYDROCHLORIDE
     Dosage: UNK
     Route: 065
  8. ACTEMRA [Suspect]
     Active Substance: TOCILIZUMAB
     Indication: Rheumatoid arthritis
     Dosage: 160.0 MG, 1 EVERY 1 WEEK
     Route: 058
  9. ACTEMRA [Suspect]
     Active Substance: TOCILIZUMAB
     Dosage: UNK
     Route: 042
  10. ADALIMUMAB [Suspect]
     Active Substance: ADALIMUMAB
     Indication: Rheumatoid arthritis
     Dosage: 40.0 MG
     Route: 058
  11. ADALIMUMAB [Suspect]
     Active Substance: ADALIMUMAB
     Indication: Rheumatoid arthritis
     Dosage: UN K
     Route: 065
  12. ALENDRONATE SODIUM [Suspect]
     Active Substance: ALENDRONATE SODIUM
     Indication: Product used for unknown indication
     Dosage: UNK
     Route: 065
  13. ALENDRONATE SODIUM [Suspect]
     Active Substance: ALENDRONATE SODIUM
     Dosage: UNK
     Route: 065
  14. ALENDRONATE SODIUM [Suspect]
     Active Substance: ALENDRONATE SODIUM
     Dosage: UNK
     Route: 065
  15. ALENDRONIC ACID [Suspect]
     Active Substance: ALENDRONIC ACID
     Indication: Product used for unknown indication
     Dosage: UNK
     Route: 065
  16. ALENDRONIC ACID [Suspect]
     Active Substance: ALENDRONIC ACID
     Dosage: UNK
     Route: 048
  17. ALLOPURINOL [Suspect]
     Active Substance: ALLOPURINOL
     Indication: Product used for unknown indication
     Dosage: 75.0 MG, QD
     Route: 048
  18. ALLOPURINOL [Suspect]
     Active Substance: ALLOPURINOL
     Dosage: UNK
     Route: 065
  19. AMITRIPTYLINE [Suspect]
     Active Substance: AMITRIPTYLINE
     Indication: Product used for unknown indication
     Dosage: 75.0 MG, QD
     Route: 048
  20. AMITRIPTYLINE [Suspect]
     Active Substance: AMITRIPTYLINE
     Dosage: UNK
     Route: 065
  21. AMITRIPTYLINE [Suspect]
     Active Substance: AMITRIPTYLINE
     Dosage: 75.0 MG, QD
     Route: 048
  22. AMITRIPTYLINE HYDROCHLORIDE [Suspect]
     Active Substance: AMITRIPTYLINE HYDROCHLORIDE
     Indication: Product used for unknown indication
     Dosage: 75.0 MG, QD
     Route: 048
  23. MELOXICAM [Suspect]
     Active Substance: MELOXICAM
     Indication: Product used for unknown indication
     Dosage: UNK
     Route: 065
  24. MELOXICAM [Suspect]
     Active Substance: MELOXICAM
     Dosage: 150.0 MG, QD
     Route: 065
  25. NAPROXEN [Suspect]
     Active Substance: NAPROXEN
     Indication: Product used for unknown indication
     Dosage: 500.0 MG, QD
     Route: 048
  26. NAPROXEN [Suspect]
     Active Substance: NAPROXEN
     Dosage: 500.0 MG, BID
     Route: 048
  27. NAPROXEN [Suspect]
     Active Substance: NAPROXEN
     Dosage: 500.0 MG, BID
     Route: 048
  28. NAPROXEN [Suspect]
     Active Substance: NAPROXEN
     Dosage: 1000 MG, BID
     Route: 048
  29. NAPROXEN [Suspect]
     Active Substance: NAPROXEN
     Indication: Product used for unknown indication
     Dosage: 250.0 MG, BID
     Route: 048
  30. PREDNISONE [Suspect]
     Active Substance: PREDNISONE
     Indication: Rheumatoid arthritis
     Dosage: 15.0 MG, QD
     Route: 065
  31. PREDNISONE [Suspect]
     Active Substance: PREDNISONE
     Dosage: UNK
     Route: 065
  32. ARAVA [Suspect]
     Active Substance: LEFLUNOMIDE
     Indication: Product used for unknown indication
     Dosage: 20.0 MG
     Route: 048
  33. ARAVA [Suspect]
     Active Substance: LEFLUNOMIDE
     Dosage: UNK
     Route: 065
  34. AZATHIOPRINE [Suspect]
     Active Substance: AZATHIOPRINE
     Indication: Product used for unknown indication
     Dosage: 150.0 MG, BID
     Route: 048
  35. AZATHIOPRINE [Suspect]
     Active Substance: AZATHIOPRINE
     Indication: Product used for unknown indication
     Dosage: 150.0 MG
     Route: 065
  36. AZATHIOPRINE [Suspect]
     Active Substance: AZATHIOPRINE
     Indication: Rheumatoid arthritis
     Dosage: 150.0 MG
     Route: 065
  37. AZATHIOPRINE [Suspect]
     Active Substance: AZATHIOPRINE
     Dosage: UNK
     Route: 065
  38. AZATHIOPRINE SODIUM [Suspect]
     Active Substance: AZATHIOPRINE SODIUM
     Indication: Product used for unknown indication
     Dosage: UNK
     Route: 065
  39. BENZALKONIUM CHLORIDE [Suspect]
     Active Substance: BENZALKONIUM CHLORIDE
     Indication: Product used for unknown indication
     Dosage: UNK
     Route: 065
  40. BENZALKONIUM CHLORIDE\DIPHENHYDRAMINE HYDROCHLORIDE\PHENYLEPHRINE HYDR [Suspect]
     Active Substance: BENZALKONIUM CHLORIDE\DIPHENHYDRAMINE HYDROCHLORIDE\PHENYLEPHRINE HYDROCHLORIDE
     Indication: Product used for unknown indication
     Dosage: UNK
     Route: 030
  41. ENBREL [Suspect]
     Active Substance: ETANERCEPT
     Indication: Rheumatoid arthritis
     Dosage: 50 MG
     Route: 058
  42. ENBREL [Suspect]
     Active Substance: ETANERCEPT
     Dosage: 40 MG, 1 EVERY 1 WEEK
     Route: 058
  43. ENBREL [Suspect]
     Active Substance: ETANERCEPT
     Dosage: 40 MG, QD
     Route: 065
  44. ENBREL [Suspect]
     Active Substance: ETANERCEPT
     Dosage: 40 MG, 1 EVERY 1 WEEK
     Route: 058
  45. ENBREL [Suspect]
     Active Substance: ETANERCEPT
     Dosage: 50.0 G, QD
     Route: 065
  46. ENBREL [Suspect]
     Active Substance: ETANERCEPT
     Dosage: 50.0 MG, 1 EVERY 1 WEEK
     Route: 058
  47. ENBREL [Suspect]
     Active Substance: ETANERCEPT
     Dosage: UNK
     Route: 065
  48. ESOMEPRAZOLE [Suspect]
     Active Substance: ESOMEPRAZOLE
     Indication: Product used for unknown indication
     Dosage: UNK
     Route: 065
  49. ESOMEPRAZOLE MAGNESIUM [Suspect]
     Active Substance: ESOMEPRAZOLE MAGNESIUM
     Indication: Product used for unknown indication
     Dosage: UNK
     Route: 048
  50. ESOMEPRAZOLE MAGNESIUM [Suspect]
     Active Substance: ESOMEPRAZOLE MAGNESIUM
     Dosage: UNK
     Route: 065
  51. ESOMEPRAZOLE MAGNESIUM\NAPROXEN [Suspect]
     Active Substance: ESOMEPRAZOLE MAGNESIUM\NAPROXEN
     Indication: Product used for unknown indication
     Dosage: UNK
     Route: 065
  52. ESOMEPRAZOLE MAGNESIUM\NAPROXEN [Suspect]
     Active Substance: ESOMEPRAZOLE MAGNESIUM\NAPROXEN
     Dosage: UNK
     Route: 065
  53. ESOMEPRAZOLE MAGNESIUM\NAPROXEN [Suspect]
     Active Substance: ESOMEPRAZOLE MAGNESIUM\NAPROXEN
     Indication: Product used for unknown indication
     Dosage: UNK
     Route: 065
  54. ESOMEPRAZOLE MAGNESIUM\NAPROXEN [Suspect]
     Active Substance: ESOMEPRAZOLE MAGNESIUM\NAPROXEN
     Dosage: UNK
     Route: 048
  55. ESOMEPRAZOLE MAGNESIUM\NAPROXEN [Suspect]
     Active Substance: ESOMEPRAZOLE MAGNESIUM\NAPROXEN
     Indication: Rheumatoid arthritis
     Dosage: UNK
     Route: 048
  56. ESOMEPRAZOLE MAGNESIUM\NAPROXEN [Suspect]
     Active Substance: ESOMEPRAZOLE MAGNESIUM\NAPROXEN
     Dosage: UNK
     Route: 065
  57. HUMIRA [Suspect]
     Active Substance: ADALIMUMAB
     Indication: Rheumatoid arthritis
     Dosage: UNK
     Route: 065
  58. HUMIRA [Suspect]
     Active Substance: ADALIMUMAB
     Indication: Drug therapy
  59. HUMIRA [Suspect]
     Active Substance: ADALIMUMAB
     Indication: Rheumatoid arthritis
     Dosage: 40.0 MG
     Route: 058
  60. HUMIRA [Suspect]
     Active Substance: ADALIMUMAB
     Indication: Drug therapy
  61. HYDROXYCHLOROQUINE [Suspect]
     Active Substance: HYDROXYCHLOROQUINE
     Indication: Product used for unknown indication
     Dosage: UNK
     Route: 065
  62. HYDROXYCHLOROQUINE [Suspect]
     Active Substance: HYDROXYCHLOROQUINE
     Dosage: UNK, QD
     Route: 065
  63. HYDROXYCHLOROQUINE SULFATE [Suspect]
     Active Substance: HYDROXYCHLOROQUINE SULFATE
     Indication: Product used for unknown indication
     Dosage: UNK
     Route: 065
  64. HYDROXYCHLOROQUINE SULFATE [Suspect]
     Active Substance: HYDROXYCHLOROQUINE SULFATE
     Dosage: UNK
     Route: 065
  65. HYDROXYCHLOROQUINE SULFATE [Suspect]
     Active Substance: HYDROXYCHLOROQUINE SULFATE
     Dosage: UNK
     Route: 065
  66. HYDROXYCHLOROQUINE SULFATE [Suspect]
     Active Substance: HYDROXYCHLOROQUINE SULFATE
     Dosage: 400.0 MG, QD
     Route: 048
  67. HYDROXYCHLOROQUINE SULFATE [Suspect]
     Active Substance: HYDROXYCHLOROQUINE SULFATE
     Dosage: UNK
     Route: 065
  68. LEFLUNOMIDE [Suspect]
     Active Substance: LEFLUNOMIDE
     Indication: Product used for unknown indication
     Dosage: UNK
     Route: 048
  69. LEFLUNOMIDE [Suspect]
     Active Substance: LEFLUNOMIDE
     Indication: Product used for unknown indication
     Dosage: UNK
     Route: 065
  70. LYRICA [Suspect]
     Active Substance: PREGABALIN
     Indication: Rheumatoid arthritis
     Dosage: 150.0 MG, BID
     Route: 048
  71. LYRICA [Suspect]
     Active Substance: PREGABALIN
     Dosage: 300 MG, BID
     Route: 048
  72. MELOXICAM [Suspect]
     Active Substance: MELOXICAM
     Indication: Rheumatoid arthritis
     Dosage: 150.0 MG, QD
     Route: 065
  73. MELOXICAM [Suspect]
     Active Substance: MELOXICAM
     Indication: Rheumatoid arthritis
     Dosage: UNK
     Route: 065
  74. METHOTREXATE [Suspect]
     Active Substance: METHOTREXATE
     Indication: Rheumatoid arthritis
     Dosage: 20.0 MG, 1 EVERY 1 WEEK
     Route: 058
  75. METHOTREXATE [Suspect]
     Active Substance: METHOTREXATE
     Dosage: 20.0 MG
     Route: 048
  76. METHOTREXATE [Suspect]
     Active Substance: METHOTREXATE
     Dosage: 17.5 MG
     Route: 065
  77. METHOTREXATE [Suspect]
     Active Substance: METHOTREXATE
     Dosage: 20.0 MG, 1 EVERY 1 WEEK
     Route: 048
  78. METHOTREXATE [Suspect]
     Active Substance: METHOTREXATE
     Dosage: 15.0 MG, 1 EVERY 1 WEEKS
     Route: 048
  79. METHOTREXATE [Suspect]
     Active Substance: METHOTREXATE
     Dosage: 25.0 MG, 1 EVERY 1 WEEKS
     Route: 065
  80. METHOTREXATE [Suspect]
     Active Substance: METHOTREXATE
     Dosage: UNK
     Route: 058
  81. METHOTREXATE [Suspect]
     Active Substance: METHOTREXATE
     Dosage: UNK
     Route: 065
  82. METHOTREXATE [Suspect]
     Active Substance: METHOTREXATE
     Dosage: 20.0 MG, 1 EVERY 1 WEEKS
     Route: 048
  83. METHOTREXATE [Suspect]
     Active Substance: METHOTREXATE
     Dosage: UNK
     Route: 058
  84. METHOTREXATE [Suspect]
     Active Substance: METHOTREXATE
     Dosage: 20.0 MG
     Route: 058
  85. METHYLPREDNISOLONE ACETATE [Suspect]
     Active Substance: METHYLPREDNISOLONE ACETATE
     Indication: Rheumatoid arthritis
     Dosage: UNK
     Route: 014
  86. METHYLPREDNISOLONE ACETATE [Suspect]
     Active Substance: METHYLPREDNISOLONE ACETATE
     Dosage: UNK
     Route: 065
  87. METHYLPREDNISOLONE ACETATE [Suspect]
     Active Substance: METHYLPREDNISOLONE ACETATE
     Indication: Rheumatoid arthritis
     Dosage: UNK
     Route: 014
  88. METHYLPREDNISOLONE ACETATE [Suspect]
     Active Substance: METHYLPREDNISOLONE ACETATE
     Indication: Inflammation
     Dosage: UNK
     Route: 065
  89. METHYLPREDNISOLONE SODIUM SUCCINATE [Suspect]
     Active Substance: METHYLPREDNISOLONE SODIUM SUCCINATE
     Indication: Rheumatoid arthritis
     Dosage: UNK
     Route: 065
  90. MELOXICAM [Suspect]
     Active Substance: MELOXICAM
     Indication: Product used for unknown indication
     Dosage: UNK
     Route: 065
  91. MELOXICAM [Suspect]
     Active Substance: MELOXICAM
     Dosage: UNK
     Route: 048
  92. MELOXICAM [Suspect]
     Active Substance: MELOXICAM
     Dosage: 150.0 MG, QD
     Route: 065
  93. NAPROXEN [Suspect]
     Active Substance: NAPROXEN
     Indication: Rheumatoid arthritis
     Dosage: 250.0 MG, BID
     Route: 048
  94. NAPROXEN [Suspect]
     Active Substance: NAPROXEN
     Indication: Inflammation
  95. NAPROXEN [Suspect]
     Active Substance: NAPROXEN
     Indication: Bursitis
  96. NAPROXEN [Suspect]
     Active Substance: NAPROXEN
     Indication: Back pain
  97. NAPROXEN [Suspect]
     Active Substance: NAPROXEN
     Indication: Rheumatoid arthritis
     Dosage: 125.0 MG, QD
     Route: 058
  98. NAPROXEN [Suspect]
     Active Substance: NAPROXEN
     Indication: Inflammation
     Dosage: UNK, QD
     Route: 048
  99. NAPROXEN [Suspect]
     Active Substance: NAPROXEN
     Indication: Bursitis
     Dosage: 250.0 MG
     Route: 065
  100. NAPROXEN [Suspect]
     Active Substance: NAPROXEN
     Indication: Back pain
     Dosage: 500.0 MG, QD
     Route: 065
  101. NAPROXEN [Suspect]
     Active Substance: NAPROXEN
     Dosage: 500.0 MG
     Route: 065
  102. NAPROXEN [Suspect]
     Active Substance: NAPROXEN
     Dosage: 500.0 MG, BID
     Route: 048
  103. NAPROXEN [Suspect]
     Active Substance: NAPROXEN
     Dosage: 1000.0 MG
     Route: 065
  104. NAPROXEN [Suspect]
     Active Substance: NAPROXEN
     Dosage: 500.0 MG, BID
     Route: 065
  105. NAPROXEN [Suspect]
     Active Substance: NAPROXEN
     Dosage: 500.0 MG, BID
     Route: 065
  106. NAPROXEN [Suspect]
     Active Substance: NAPROXEN
     Dosage: 500.0 MG, BID
     Route: 048
  107. NAPROXEN [Suspect]
     Active Substance: NAPROXEN
     Dosage: 1000.0 MG, QD
     Route: 048
  108. NAPROXEN [Suspect]
     Active Substance: NAPROXEN
     Dosage: 500.0 UNK
     Route: 065
  109. NAPROXEN [Suspect]
     Active Substance: NAPROXEN
     Dosage: 500.0 MG, QD
     Route: 048
  110. NAPROXEN [Suspect]
     Active Substance: NAPROXEN
     Dosage: UNK
     Route: 065
  111. NAPROXEN [Suspect]
     Active Substance: NAPROXEN
     Dosage: 1000.0 MG, QD
     Route: 065
  112. NAPROXEN SODIUM [Suspect]
     Active Substance: NAPROXEN SODIUM
     Indication: Product used for unknown indication
     Dosage: 500.0 MG, QD
     Route: 048
  113. NAPROXEN SODIUM [Suspect]
     Active Substance: NAPROXEN SODIUM
     Dosage: 1000.0 MG, QD
     Route: 048
  114. NAPROXEN SODIUM [Suspect]
     Active Substance: NAPROXEN SODIUM
     Dosage: 500.0 MG, BID
     Route: 048
  115. NAPROXEN SODIUM [Suspect]
     Active Substance: NAPROXEN SODIUM
     Dosage: 250.0 MG, BID
     Route: 048
  116. ORENCIA [Suspect]
     Active Substance: ABATACEPT
     Indication: Rheumatoid arthritis
     Dosage: UN K
     Route: 065
  117. ORENCIA [Suspect]
     Active Substance: ABATACEPT
     Dosage: 125.0 MG, QD
     Route: 058
  118. ORENCIA [Suspect]
     Active Substance: ABATACEPT
     Dosage: 750.0 MG
     Route: 042
  119. ORENCIA [Suspect]
     Active Substance: ABATACEPT
     Dosage: UNK
     Route: 042
  120. PANTOPRAZOLE SODIUM [Suspect]
     Active Substance: PANTOPRAZOLE SODIUM
     Indication: Product used for unknown indication
     Dosage: UNK
     Route: 065
  121. PANTOPRAZOLE SODIUM [Suspect]
     Active Substance: PANTOPRAZOLE SODIUM
     Dosage: UNK
     Route: 048
  122. PANTOPRAZOLE SODIUM [Suspect]
     Active Substance: PANTOPRAZOLE SODIUM
     Dosage: UNK
     Route: 048
  123. PANTOPRAZOLE SODIUM [Suspect]
     Active Substance: PANTOPRAZOLE SODIUM
     Indication: Product used for unknown indication
     Dosage: UNK
     Route: 048
  124. PANTOPRAZOLE SODIUM [Suspect]
     Active Substance: PANTOPRAZOLE SODIUM
     Dosage: UNK
     Route: 065
  125. PHENYLEPHRINE HYDROCHLORIDE [Suspect]
     Active Substance: PHENYLEPHRINE HYDROCHLORIDE
     Indication: Product used for unknown indication
     Dosage: UNK
     Route: 030
  126. PREDNISONE [Suspect]
     Active Substance: PREDNISONE
     Indication: Rheumatoid arthritis
     Dosage: UNK
     Route: 048
  127. PREDNISONE [Suspect]
     Active Substance: PREDNISONE
     Indication: Inflammation
     Dosage: 150.0 MG, QD
     Route: 048
  128. PREDNISONE [Suspect]
     Active Substance: PREDNISONE
     Indication: Bursitis
     Dosage: 15.0 MG, QD
     Route: 048
  129. PREDNISONE [Suspect]
     Active Substance: PREDNISONE
     Dosage: UNK
     Route: 065
  130. PREDNISONE [Suspect]
     Active Substance: PREDNISONE
     Dosage: 150.0 MG, QD
     Route: 065
  131. PREDNISONE [Suspect]
     Active Substance: PREDNISONE
     Indication: Rheumatoid arthritis
     Dosage: 150.0 MG, QD
     Route: 065
  132. PREDNISONE [Suspect]
     Active Substance: PREDNISONE
     Indication: Inflammation
  133. PREDNISONE [Suspect]
     Active Substance: PREDNISONE
     Indication: Bursitis
  134. PREGABALIN [Suspect]
     Active Substance: PREGABALIN
     Indication: Rheumatoid arthritis
     Dosage: 300.0 MG, QD
     Route: 048
  135. PREGABALIN [Suspect]
     Active Substance: PREGABALIN
     Indication: Fibromyalgia
     Dosage: 300.0 MG, QD
     Route: 048
  136. PREGABALIN [Suspect]
     Active Substance: PREGABALIN
     Dosage: 300.0 MG, QD
     Route: 048
  137. CODEINE [Concomitant]
     Active Substance: CODEINE
     Indication: Product used for unknown indication
     Dosage: UNK
     Route: 065
  138. CODEINE [Concomitant]
     Active Substance: CODEINE
     Dosage: UNK, QD
     Route: 065
  139. RANITIDINE [Suspect]
     Active Substance: RANITIDINE
     Indication: Product used for unknown indication
     Dosage: 150.0 MG, QD
     Route: 048
  140. RANITIDINE [Suspect]
     Active Substance: RANITIDINE
     Dosage: 150.0 MG, BID
     Route: 048
  141. RANITIDINE [Suspect]
     Active Substance: RANITIDINE
     Dosage: 300.0 MG, 1 EVERY 1 WEEKS
     Route: 048
  142. RANITIDINE [Suspect]
     Active Substance: RANITIDINE
     Dosage: 300.0 MG, QD
     Route: 048
  143. RANITIDINE HYDROCHLORIDE [Suspect]
     Active Substance: RANITIDINE HYDROCHLORIDE
     Indication: Product used for unknown indication
     Dosage: 300.0 MG, QD
     Route: 048
  144. RANITIDINE HYDROCHLORIDE [Suspect]
     Active Substance: RANITIDINE HYDROCHLORIDE
     Dosage: 15.0 MG, BID
     Route: 048
  145. RANITIDINE HYDROCHLORIDE [Suspect]
     Active Substance: RANITIDINE HYDROCHLORIDE
     Dosage: UNK
     Route: 048
  146. RANITIDINE HYDROCHLORIDE [Suspect]
     Active Substance: RANITIDINE HYDROCHLORIDE
     Dosage: 300.0 MG, 1 EVERY 1 WEEKS
     Route: 048
  147. RANITIDINE HYDROCHLORIDE [Suspect]
     Active Substance: RANITIDINE HYDROCHLORIDE
     Dosage: UNK
     Route: 065
  148. RANITIDINE HYDROCHLORIDE [Suspect]
     Active Substance: RANITIDINE HYDROCHLORIDE
     Dosage: 300.0 MG, QD
     Route: 048
  149. RANITIDINE HYDROCHLORIDE [Suspect]
     Active Substance: RANITIDINE HYDROCHLORIDE
     Dosage: 150.0 MG, BID
     Route: 048
  150. RANITIDINE HYDROCHLORIDE [Suspect]
     Active Substance: RANITIDINE HYDROCHLORIDE
     Dosage: 15.0 UNK
     Route: 048
  151. RITUXIMAB [Suspect]
     Active Substance: RITUXIMAB
     Indication: Rheumatoid arthritis
     Dosage: UNK
     Route: 065
  152. RITUXIMAB [Suspect]
     Active Substance: RITUXIMAB
     Dosage: UNK
     Route: 042
  153. RITUXIMAB [Suspect]
     Active Substance: RITUXIMAB
     Dosage: UNK
     Route: 041
  154. SEPTRA [Suspect]
     Active Substance: SULFAMETHOXAZOLE\TRIMETHOPRIM
     Indication: Product used for unknown indication
     Dosage: UNK
     Route: 065
  155. SIMPONI [Suspect]
     Active Substance: GOLIMUMAB
     Indication: Product used for unknown indication
     Dosage: UNK
     Route: 058
  156. SODIUM BORATE [Suspect]
     Active Substance: SODIUM BORATE
     Indication: Product used for unknown indication
     Dosage: UNK
     Route: 065
  157. GOLD SODIUM THIOMALATE [Suspect]
     Active Substance: GOLD SODIUM THIOMALATE
     Indication: Product used for unknown indication
     Dosage: UNK
     Route: 065
  158. SODIUM PERBORATE [Suspect]
     Active Substance: SODIUM PERBORATE
     Indication: Product used for unknown indication
     Dosage: UN K
     Route: 065
  159. SULFAMETHOXAZOLE [Suspect]
     Active Substance: SULFAMETHOXAZOLE
     Indication: Product used for unknown indication
     Dosage: UNK
     Route: 065
  160. SULFAMETHOXAZOLE\TRIMETHOPRIM [Suspect]
     Active Substance: SULFAMETHOXAZOLE\TRIMETHOPRIM
     Indication: Product used for unknown indication
     Dosage: UNK
     Route: 065
  161. SULFASALAZINE [Suspect]
     Active Substance: SULFASALAZINE
     Indication: Rheumatoid arthritis
     Dosage: 1.0 G, BID
     Route: 065
  162. SULFASALAZINE [Suspect]
     Active Substance: SULFASALAZINE
     Dosage: 1000.0 MG, 1 EVERY 1 WEEK
     Route: 048
  163. SULFASALAZINE [Suspect]
     Active Substance: SULFASALAZINE
     Dosage: 1.0 G, QD
     Route: 048
  164. TOFACITINIB CITRATE [Suspect]
     Active Substance: TOFACITINIB CITRATE
     Indication: Rheumatoid arthritis
     Dosage: 5.0 MG, BID
     Route: 048
  165. TOFACITINIB CITRATE [Suspect]
     Active Substance: TOFACITINIB CITRATE
     Dosage: 2.0 MG, QD
     Route: 048
  166. TOFACITINIB CITRATE [Suspect]
     Active Substance: TOFACITINIB CITRATE
     Dosage: 10.0 MG, QD
     Route: 048
  167. TOFACITINIB CITRATE [Suspect]
     Active Substance: TOFACITINIB CITRATE
     Dosage: 2.0 DF, QD
     Route: 048
  168. NAPROXEN SODIUM [Suspect]
     Active Substance: NAPROXEN SODIUM
     Indication: Product used for unknown indication
     Dosage: 250.0 MG, BID
     Route: 048
  169. TRIMETHOPRIM [Suspect]
     Active Substance: TRIMETHOPRIM
     Indication: Product used for unknown indication
     Dosage: UNK
     Route: 065
  170. VITAMIN D3 [Suspect]
     Active Substance: CHOLECALCIFEROL
     Indication: Product used for unknown indication
     Dosage: UNK
     Route: 065
  171. ACETAMINOPHEN\OXYCODONE HYDROCHLORIDE [Suspect]
     Active Substance: ACETAMINOPHEN\OXYCODONE HYDROCHLORIDE
     Indication: Product used for unknown indication
     Dosage: UNK
     Route: 065
  172. AMOXICILLIN [Suspect]
     Active Substance: AMOXICILLIN
     Indication: Product used for unknown indication
     Dosage: UNK
     Route: 065
  173. BACTRIM [Suspect]
     Active Substance: SULFAMETHOXAZOLE\TRIMETHOPRIM
     Indication: Product used for unknown indication
     Dosage: UNK
     Route: 065
  174. CIMZIA [Suspect]
     Active Substance: CERTOLIZUMAB PEGOL
     Indication: Rheumatoid arthritis
     Dosage: UNK
     Route: 065
  175. GOLD [Suspect]
     Active Substance: GOLD
     Indication: Rheumatoid arthritis
     Dosage: UNK
     Route: 065
  176. AMITRIPTYLINE PAMOATE [Suspect]
     Active Substance: AMITRIPTYLINE PAMOATE
     Indication: Product used for unknown indication
     Dosage: 75 MG, QD
     Route: 048
  177. DIPHENHYDRAMINE HYDROCHLORIDE [Suspect]
     Active Substance: DIPHENHYDRAMINE HYDROCHLORIDE
     Indication: Product used for unknown indication
     Dosage: UNK
     Route: 065
  178. BORIC ACID [Suspect]
     Active Substance: BORIC ACID
     Indication: Product used for unknown indication
     Dosage: UNK
     Route: 016
  179. IMURAN [Suspect]
     Active Substance: AZATHIOPRINE
     Indication: Product used for unknown indication
     Dosage: 150 MG
     Route: 065
  180. HUMAN IMMUNOGLOBULIN G [Suspect]
     Active Substance: HUMAN IMMUNOGLOBULIN G
     Indication: Product used for unknown indication
     Dosage: UNK
     Route: 065
  181. FOSAMAX [Suspect]
     Active Substance: ALENDRONATE SODIUM
     Indication: Product used for unknown indication
     Dosage: UNK
     Route: 065
  182. ETHYLENEDIAMINE [Suspect]
     Active Substance: ETHYLENEDIAMINE
     Indication: Product used for unknown indication
     Dosage: UNK
     Route: 016
  183. EDETATE DISODIUM [Suspect]
     Active Substance: EDETATE DISODIUM
     Indication: Product used for unknown indication
     Dosage: UNK
     Route: 065
  184. DEPO-MEDROL [Suspect]
     Active Substance: METHYLPREDNISOLONE ACETATE
     Indication: Rheumatoid arthritis
     Dosage: UNK
     Route: 014
  185. REMICADE [Suspect]
     Active Substance: INFLIXIMAB
     Indication: Product used for unknown indication
     Dosage: UNK
     Route: 042
  186. HUMAN RHO(D) IMMUNE GLOBULIN [Suspect]
     Active Substance: HUMAN RHO(D) IMMUNE GLOBULIN
     Indication: Product used for unknown indication
     Dosage: UNK
     Route: 065
  187. GINKGO [Concomitant]
     Active Substance: GINKGO
     Indication: Product used for unknown indication
     Dosage: UNK
     Route: 016
  188. LIPITOR [Concomitant]
     Active Substance: ATORVASTATIN CALCIUM
     Indication: Product used for unknown indication
     Dosage: 10.0 MG
     Route: 065
  189. LIPITOR [Concomitant]
     Active Substance: ATORVASTATIN CALCIUM
     Dosage: 10.0 UNK
     Route: 048
  190. LIPITOR [Concomitant]
     Active Substance: ATORVASTATIN CALCIUM
     Dosage: UNK
     Route: 065
  191. HYDROXYCHLOROQUINE SULFATE [Concomitant]
     Active Substance: HYDROXYCHLOROQUINE SULFATE
     Indication: Product used for unknown indication
     Dosage: UNK
     Route: 065
  192. PLAQUENIL [Concomitant]
     Active Substance: HYDROXYCHLOROQUINE SULFATE
     Indication: Product used for unknown indication
     Dosage: UNK
     Route: 065
  193. IBUPROFEN [Concomitant]
     Active Substance: IBUPROFEN
     Indication: Product used for unknown indication
     Dosage: UNK
     Route: 065
  194. IBUPROFEN [Concomitant]
     Active Substance: IBUPROFEN
     Dosage: 400.0 MG
     Route: 065
  195. CELECOXIB [Concomitant]
     Active Substance: CELECOXIB
     Indication: Product used for unknown indication
     Dosage: UNK
     Route: 065
  196. CANNABIS SATIVA FLOWERING TOP [Concomitant]
     Active Substance: CANNABIS SATIVA FLOWERING TOP
     Indication: Product used for unknown indication
     Dosage: 1.0 G, QD
     Route: 065
  197. CANNABIS SATIVA FLOWERING TOP [Concomitant]
     Active Substance: CANNABIS SATIVA FLOWERING TOP
     Dosage: UNK
     Route: 065
  198. CELEBREX [Concomitant]
     Active Substance: CELECOXIB
     Indication: Product used for unknown indication
     Dosage: UNK
     Route: 065
  199. CELEBREX [Concomitant]
     Active Substance: CELECOXIB
     Dosage: 400.0 MG
     Route: 048
  200. XELJANZ [Suspect]
     Active Substance: TOFACITINIB CITRATE
     Indication: Rheumatoid arthritis
     Dosage: 5.0 MG, BID
     Route: 048
  201. XELJANZ [Suspect]
     Active Substance: TOFACITINIB CITRATE
     Dosage: 2.0 MG, BID
     Route: 048
  202. XELJANZ [Suspect]
     Active Substance: TOFACITINIB CITRATE
     Dosage: 5.0 MG
     Route: 048
  203. XELJANZ [Suspect]
     Active Substance: TOFACITINIB CITRATE
     Dosage: 2.0 MG
     Route: 048
  204. XELJANZ [Suspect]
     Active Substance: TOFACITINIB CITRATE
     Dosage: 10.0 MG, QD
     Route: 048
  205. XELJANZ [Suspect]
     Active Substance: TOFACITINIB CITRATE
     Dosage: 2.0 DF, QD
     Route: 065
  206. XELJANZ [Suspect]
     Active Substance: TOFACITINIB CITRATE
     Dosage: 5.0 MG
     Route: 048
  207. XELJANZ [Suspect]
     Active Substance: TOFACITINIB CITRATE
     Dosage: 2.0 MG, QD
     Route: 048
  208. XELJANZ [Suspect]
     Active Substance: TOFACITINIB CITRATE
     Dosage: UNK, QD
     Route: 048
  209. DEXILANT [Concomitant]
     Active Substance: DEXLANSOPRAZOLE
     Indication: Product used for unknown indication
     Dosage: 60.0 MG, QD
     Route: 048
  210. LEVOTHYROXINE [Concomitant]
     Active Substance: LEVOTHYROXINE
     Indication: Product used for unknown indication
     Dosage: 17.5 MG, QD
     Route: 065
  211. FOLIC ACID [Concomitant]
     Active Substance: FOLIC ACID
     Indication: Product used for unknown indication
     Dosage: UNK
     Route: 065

REACTIONS (94)
  - Synovial cyst [Not Recovered/Not Resolved]
  - Abdominal pain [Not Recovered/Not Resolved]
  - Allergy to chemicals [Not Recovered/Not Resolved]
  - Antinuclear antibody positive [Not Recovered/Not Resolved]
  - Arthralgia [Not Recovered/Not Resolved]
  - Arthritis [Not Recovered/Not Resolved]
  - Arthropathy [Not Recovered/Not Resolved]
  - Atelectasis [Not Recovered/Not Resolved]
  - Back pain [Not Recovered/Not Resolved]
  - Bone density decreased [Not Recovered/Not Resolved]
  - Bursitis [Not Recovered/Not Resolved]
  - C-reactive protein increased [Not Recovered/Not Resolved]
  - Condition aggravated [Not Recovered/Not Resolved]
  - Conjunctivitis [Not Recovered/Not Resolved]
  - Contraindicated product administered [Not Recovered/Not Resolved]
  - Crepitations [Not Recovered/Not Resolved]
  - Cushingoid [Not Recovered/Not Resolved]
  - Deformity [Not Recovered/Not Resolved]
  - Diarrhoea [Not Recovered/Not Resolved]
  - Dizziness [Not Recovered/Not Resolved]
  - Drug hypersensitivity [Not Recovered/Not Resolved]
  - Drug ineffective [Not Recovered/Not Resolved]
  - Drug intolerance [Not Recovered/Not Resolved]
  - Dry eye [Not Recovered/Not Resolved]
  - Dry mouth [Not Recovered/Not Resolved]
  - Dyspnoea [Not Recovered/Not Resolved]
  - Erythema [Not Recovered/Not Resolved]
  - Fatigue [Not Recovered/Not Resolved]
  - Feeling abnormal [Not Recovered/Not Resolved]
  - Feeling jittery [Not Recovered/Not Resolved]
  - Fibromyalgia [Not Recovered/Not Resolved]
  - Flank pain [Not Recovered/Not Resolved]
  - Gastrointestinal toxicity [Not Recovered/Not Resolved]
  - Haemoglobin decreased [Not Recovered/Not Resolved]
  - Hand deformity [Not Recovered/Not Resolved]
  - Hepatotoxicity [Not Recovered/Not Resolved]
  - Impaired work ability [Not Recovered/Not Resolved]
  - Infection [Not Recovered/Not Resolved]
  - Inflammation [Not Recovered/Not Resolved]
  - Interstitial lung disease [Not Recovered/Not Resolved]
  - Joint effusion [Not Recovered/Not Resolved]
  - Joint injury [Not Recovered/Not Resolved]
  - Joint range of motion decreased [Not Recovered/Not Resolved]
  - Joint stiffness [Not Recovered/Not Resolved]
  - Joint swelling [Not Recovered/Not Resolved]
  - Liver disorder [Not Recovered/Not Resolved]
  - Lung disorder [Not Recovered/Not Resolved]
  - Malaise [Not Recovered/Not Resolved]
  - Muscular weakness [Not Recovered/Not Resolved]
  - Musculoskeletal pain [Not Recovered/Not Resolved]
  - Musculoskeletal stiffness [Not Recovered/Not Resolved]
  - Myalgia [Not Recovered/Not Resolved]
  - Nausea [Not Recovered/Not Resolved]
  - Neoplasm malignant [Not Recovered/Not Resolved]
  - Nodule [Not Recovered/Not Resolved]
  - Off label use [Not Recovered/Not Resolved]
  - Pain [Not Recovered/Not Resolved]
  - Pain in extremity [Not Recovered/Not Resolved]
  - Peripheral swelling [Not Recovered/Not Resolved]
  - Photophobia [Not Recovered/Not Resolved]
  - Pleuritic pain [Not Recovered/Not Resolved]
  - Pneumonia [Not Recovered/Not Resolved]
  - Pruritus [Not Recovered/Not Resolved]
  - Pulmonary toxicity [Not Recovered/Not Resolved]
  - Quality of life decreased [Not Recovered/Not Resolved]
  - Rash [Not Recovered/Not Resolved]
  - Rash maculo-papular [Not Recovered/Not Resolved]
  - Rash pruritic [Not Recovered/Not Resolved]
  - Red blood cell count decreased [Not Recovered/Not Resolved]
  - Rheumatoid arthritis [Not Recovered/Not Resolved]
  - Rheumatoid nodule [Not Recovered/Not Resolved]
  - Scleritis [Not Recovered/Not Resolved]
  - Skin ulcer [Not Recovered/Not Resolved]
  - Swelling face [Not Recovered/Not Resolved]
  - Swelling [Not Recovered/Not Resolved]
  - Synovial disorder [Not Recovered/Not Resolved]
  - Synovial fluid analysis [Not Recovered/Not Resolved]
  - Tenderness [Not Recovered/Not Resolved]
  - Tenosynovitis [Not Recovered/Not Resolved]
  - Tenosynovitis stenosans [Not Recovered/Not Resolved]
  - Therapeutic product effect decreased [Not Recovered/Not Resolved]
  - Therapeutic product effect incomplete [Not Recovered/Not Resolved]
  - Therapy non-responder [Not Recovered/Not Resolved]
  - Thrombosis [Not Recovered/Not Resolved]
  - Treatment failure [Not Recovered/Not Resolved]
  - Ulcer [Not Recovered/Not Resolved]
  - Upper respiratory tract infection [Not Recovered/Not Resolved]
  - Visual impairment [Not Recovered/Not Resolved]
  - Wheezing [Not Recovered/Not Resolved]
  - White blood cell count decreased [Not Recovered/Not Resolved]
  - Eye pain [Not Recovered/Not Resolved]
  - Eye irritation [Not Recovered/Not Resolved]
  - Ocular hyperaemia [Not Recovered/Not Resolved]
  - Ocular hyperaemia [Not Recovered/Not Resolved]
